FAERS Safety Report 13206899 (Version 1)
Quarter: 2017Q1

REPORT INFORMATION
  Report Type: Spontaneous
  Country: US (occurrence: US)
  Receive Date: 20170208
  Receipt Date: 20170208
  Transmission Date: 20170428
  Serious: No
  Sender: FDA-Public Use
  Company Number: None

PATIENT
  Age: 11 Year
  Sex: Male

DRUGS (8)
  1. ALBUTEROL. [Concomitant]
     Active Substance: ALBUTEROL
  2. AMOXICILLIN. [Concomitant]
     Active Substance: AMOXICILLIN
  3. CLARITIN [Concomitant]
     Active Substance: LORATADINE
  4. FOLIC ACID. [Concomitant]
     Active Substance: FOLIC ACID
  5. JADENU [Suspect]
     Active Substance: DEFERASIROX
     Indication: SICKLE CELL ANAEMIA
     Dosage: TWO 360MG TABLETS DAILY ORALLY
     Route: 048
     Dates: start: 20150717
  6. ADVAIR DISKUS [Concomitant]
     Active Substance: FLUTICASONE PROPIONATE\SALMETEROL XINAFOATE
  7. SINGULAIR [Concomitant]
     Active Substance: MONTELUKAST SODIUM
  8. EXJADE [Concomitant]
     Active Substance: DEFERASIROX

REACTIONS (2)
  - Drug dose omission [None]
  - Weight increased [None]
